FAERS Safety Report 6182712-5 (Version None)
Quarter: 2009Q2

REPORT INFORMATION
  Report Type: 
  Country: None (occurrence: None)
  Receive Date: 20090507
  Receipt Date: 20090429
  Transmission Date: 20091009
  Serious: Yes (Death)
  Sender: FDA-Public Use
  Company Number: US-PFIZER INC-2009194738

PATIENT
  Age: 73 Year
  Sex: Male
  Weight: 69.9 kg

DRUGS (21)
  1. SUNITINIB MALATE [Suspect]
     Indication: OESOPHAGEAL CARCINOMA
     Dosage: 25 MG, 1X/DAY
     Route: 048
     Dates: start: 20090304, end: 20090310
  2. FLUOROURACIL [Suspect]
     Indication: OESOPHAGEAL CARCINOMA
     Dosage: 400 MG/M2
     Route: 040
     Dates: start: 20090304, end: 20090304
  3. FLUOROURACIL [Suspect]
     Dosage: 2400 MG/M2
     Route: 041
     Dates: start: 20090304, end: 20090306
  4. IRINOTECAN HCL [Suspect]
     Indication: OESOPHAGEAL CARCINOMA
     Dosage: 180 MG/M2, ONCE
     Route: 042
     Dates: start: 20090304, end: 20090304
  5. CALCIUM FOLINATE [Suspect]
     Indication: OESOPHAGEAL CARCINOMA
     Dosage: 400 MG/M2, ONCE
     Route: 042
     Dates: start: 20090304, end: 20090304
  6. ALBUTEROL [Concomitant]
     Dosage: UNK
     Dates: start: 20090401, end: 20090406
  7. ALOE BARBADENSIS [Concomitant]
     Dosage: UNK
     Route: 048
     Dates: start: 20090312, end: 20090406
  8. BACLOFEN [Concomitant]
     Dosage: UNK
     Dates: start: 20090317, end: 20090406
  9. BENADRYL [Concomitant]
     Dosage: UNK
     Dates: start: 20090401, end: 20090406
  10. MAALOX [Concomitant]
     Dosage: UNK
     Dates: start: 20090401, end: 20090406
  11. XYLOCAINE [Concomitant]
     Dosage: UNK
     Dates: start: 20090401, end: 20090406
  12. VALSARTAN [Concomitant]
     Dosage: UNK
     Dates: start: 20090317, end: 20090406
  13. FENTANYL [Concomitant]
     Dosage: UNK
     Dates: start: 20090317, end: 20090406
  14. LASIX [Concomitant]
     Dosage: UNK
     Dates: start: 20090401, end: 20090406
  15. LIDOCAINE [Concomitant]
     Dosage: UNK
     Dates: start: 20090401, end: 20090406
  16. LOPERAMIDE [Concomitant]
     Dosage: UNK
     Dates: start: 20001006, end: 20090406
  17. MEGESTROL [Concomitant]
     Dosage: UNK
     Dates: start: 20090401, end: 20090406
  18. OMEPRAZOL [Concomitant]
     Dosage: UNK
     Dates: start: 20080924, end: 20090406
  19. SUCRALFATE [Concomitant]
     Dosage: UNK
     Dates: start: 20090312, end: 20090406
  20. ATROPINE W/DIPHENOXYLATE [Concomitant]
     Dosage: UNK
     Dates: start: 20090317, end: 20090406
  21. PROCHLORPERAZINE [Concomitant]
     Dosage: UNK
     Dates: start: 20081006, end: 20090406

REACTIONS (1)
  - ARRHYTHMIA [None]
